FAERS Safety Report 10194167 (Version 1)
Quarter: 2014Q2

REPORT INFORMATION
  Report Type: Spontaneous
  Country: US (occurrence: US)
  Receive Date: 20140524
  Receipt Date: 20140524
  Transmission Date: 20141212
  Serious: No
  Sender: FDA-Public Use
  Company Number: US-SANOFI-AVENTIS-2013SA068630

PATIENT
  Age: 54 Year
  Sex: Female
  Weight: 61.23 kg

DRUGS (12)
  1. LANTUS SOLOSTAR [Suspect]
     Indication: TYPE 2 DIABETES MELLITUS
     Dosage: DOSE:38 UNIT(S)
     Route: 051
  2. LANTUS SOLOSTAR [Suspect]
     Indication: TYPE 2 DIABETES MELLITUS
     Dosage: DOSE:38 UNIT(S)
     Route: 051
  3. LANTUS SOLOSTAR [Suspect]
     Indication: TYPE 2 DIABETES MELLITUS
     Dosage: DOSE:38 UNIT(S)
     Route: 051
  4. LANTUS SOLOSTAR [Suspect]
     Indication: TYPE 2 DIABETES MELLITUS
     Dosage: DOSE:38 UNIT(S)
     Route: 051
  5. LANTUS SOLOSTAR [Suspect]
     Indication: TYPE 2 DIABETES MELLITUS
     Dosage: DOSE:38 UNIT(S)
     Route: 051
  6. SOLOSTAR [Suspect]
     Indication: TYPE 2 DIABETES MELLITUS
  7. SOLOSTAR [Suspect]
     Indication: TYPE 2 DIABETES MELLITUS
  8. SOLOSTAR [Suspect]
     Indication: TYPE 2 DIABETES MELLITUS
  9. SOLOSTAR [Suspect]
     Indication: TYPE 2 DIABETES MELLITUS
  10. SOLOSTAR [Suspect]
     Indication: TYPE 2 DIABETES MELLITUS
  11. VICTOZA [Concomitant]
     Indication: DIABETES MELLITUS
     Dates: start: 2013
  12. LEVOXYL [Concomitant]
     Dates: start: 1992

REACTIONS (3)
  - Mental disorder [Unknown]
  - Foreign body [Unknown]
  - Drug dose omission [Unknown]
